FAERS Safety Report 8506468-3 (Version None)
Quarter: 2012Q3

REPORT INFORMATION
  Report Type: 
  Country: None (occurrence: None)
  Receive Date: 20120706
  Receipt Date: 20120706
  Transmission Date: 20120928
  Serious: Yes (Life-Threatening, Hospitalization)
  Sender: FDA-Public Use
  Company Number: None

PATIENT
  Sex: Female
  Weight: 58.9676 kg

DRUGS (2)
  1. MEDROXYPROGESTERONE ACETATE [Suspect]
     Indication: CONTRACEPTION
     Dosage: 150 MG Q 12 WKS IM
     Route: 030
     Dates: start: 20120320
  2. MEDROXYPROGESTERONE ACETATE [Suspect]
     Dates: start: 20120530

REACTIONS (3)
  - MENTAL STATUS CHANGES [None]
  - DISORIENTATION [None]
  - TRANSIENT ISCHAEMIC ATTACK [None]
